FAERS Safety Report 6534071-3 (Version None)
Quarter: 2010Q1

REPORT INFORMATION
  Report Type: 
  Country: None (occurrence: None)
  Receive Date: 20100112
  Receipt Date: 20091002
  Transmission Date: 20100710
  Serious: Yes (Other)
  Sender: FDA-Public Use
  Company Number: IE-CELGENEUS-229-20484-09121759

PATIENT
  Sex: Male
  Weight: 2.25 kg

DRUGS (8)
  1. INNOHEP [Suspect]
     Route: 064
     Dates: start: 20051130, end: 20060530
  2. STEMETIL [Concomitant]
     Route: 064
     Dates: start: 20060317
  3. DEXAMETHASONE [Concomitant]
     Route: 064
     Dates: start: 20060424
  4. METHADONE [Concomitant]
     Route: 064
  5. CITALOPRAM HYDROBROMIDE [Concomitant]
     Route: 064
  6. BECOTIDE [Concomitant]
     Route: 064
  7. VENTOLIN [Concomitant]
     Route: 064
  8. CLEXANE [Concomitant]
     Route: 064

REACTIONS (2)
  - DRUG EXPOSURE DURING PREGNANCY [None]
  - PREMATURE BABY [None]
